FAERS Safety Report 4474847-X (Version None)
Quarter: 2004Q4

REPORT INFORMATION
  Report Type: 
  Country: None (occurrence: None)
  Receive Date: 20041014
  Receipt Date: 20041004
  Transmission Date: 20050328
  Serious: Yes (Hospitalization)
  Sender: FDA-Public Use
  Company Number: BR-MERCK-0410BRA00101

PATIENT
  Age: 60 Year
  Sex: Male

DRUGS (2)
  1. ALUMINUM HYDROXIDE AND DIMETHICONE AND MAGNESIUM HYDROXIDE [Concomitant]
     Indication: GASTRITIS
     Route: 065
  2. VIOXX [Suspect]
     Indication: OSTEOARTHRITIS
     Route: 048
     Dates: end: 20020101

REACTIONS (2)
  - ISCHAEMIA [None]
  - OESOPHAGITIS [None]
